FAERS Safety Report 4918531-4 (Version None)
Quarter: 2006Q1

REPORT INFORMATION
  Report Type: 
  Country: None (occurrence: None)
  Receive Date: 20060221
  Receipt Date: 20060221
  Transmission Date: 20060701
  Serious: Yes (Other)
  Sender: FDA-Public Use
  Company Number: None

PATIENT
  Age: 16 Year
  Sex: Male

DRUGS (1)
  1. CORICIDINE HBP COUGH AND COLD (CHLORPHENIRAMINE MAL/DEX TABHLETS [Suspect]
     Dosage: ORAL
     Route: 048

REACTIONS (3)
  - HOMICIDE [None]
  - INTENTIONAL DRUG MISUSE [None]
  - INTENTIONAL OVERDOSE [None]
